FAERS Safety Report 10926296 (Version 1)
Quarter: 2015Q1

REPORT INFORMATION
  Report Type: Spontaneous
  Country: IL (occurrence: None)
  Receive Date: 20150316
  Receipt Date: 20150316
  Transmission Date: 20150721
  Serious: Yes (Death)
  Sender: FDA-Public Use
  Company Number: 2015FE00754

PATIENT
  Age: 57 Year
  Sex: Female

DRUGS (4)
  1. BISACODYL (BISACODYL) [Suspect]
     Active Substance: BISACODYL
     Indication: BOWEL PREPARATION
     Route: 048
     Dates: start: 20150227, end: 20150227
  2. PICO-SALAX (SODIUM PICOSULFATE, MGO, CITRIC ACID) POWDER FOR ORAL SOLUTION [Suspect]
     Active Substance: CITRIC ACID MONOHYDRATE\MAGNESIUM OXIDE\SODIUM PICOSULFATE
     Indication: BOWEL PREPARATION
     Route: 048
     Dates: start: 20150228
  3. BISACODYL (BISACODYL) [Suspect]
     Active Substance: BISACODYL
     Indication: COLONOSCOPY
     Route: 048
     Dates: start: 20150227, end: 20150227
  4. PICO-SALAX (SODIUM PICOSULFATE, MGO, CITRIC ACID) POWDER FOR ORAL SOLUTION [Suspect]
     Active Substance: CITRIC ACID MONOHYDRATE\MAGNESIUM OXIDE\SODIUM PICOSULFATE
     Indication: COLONOSCOPY
     Route: 048
     Dates: start: 20150228

REACTIONS (3)
  - Abdominal pain upper [None]
  - Asthenia [None]
  - Diarrhoea [None]

NARRATIVE: CASE EVENT DATE: 20150228
